FAERS Safety Report 21692599 (Version 1)
Quarter: 2022Q4

REPORT INFORMATION
  Report Type: Report from Study
  Country: US (occurrence: US)
  Receive Date: 20221207
  Receipt Date: 20221207
  Transmission Date: 20230112
  Serious: No
  Sender: FDA-Public Use
  Company Number: US-ESPERIONTHERAPEUTICS-2022USA01809

PATIENT
  Age: 84 Year
  Sex: Male
  Weight: 76.644 kg

DRUGS (11)
  1. BEMPEDOIC ACID\EZETIMIBE [Suspect]
     Active Substance: BEMPEDOIC ACID\EZETIMIBE
     Indication: Type V hyperlipidaemia
     Dosage: 180 MG/10 MG, QD
     Route: 048
     Dates: start: 20220906, end: 20220927
  2. AZELASTINE [Concomitant]
     Active Substance: AZELASTINE
     Dosage: 1 SPRAY, BID (IN EACH NOSTRIL AS DIRECTED)
     Route: 045
  3. CELEBREX [Concomitant]
     Active Substance: CELECOXIB
     Indication: Arthritis
     Dosage: 200 MILLIGRAM, QD (UNLESS ON NAPROXEN)
     Route: 048
     Dates: start: 20170727
  4. CHOLECALCIFEROL [Concomitant]
     Active Substance: CHOLECALCIFEROL
     Dosage: 50 MICROGRAM, QD
     Route: 048
     Dates: end: 20220906
  5. TEMOVATE [Concomitant]
     Active Substance: CLOBETASOL PROPIONATE
     Dosage: APPLY DAILY AS NEEDED (AVOID FACE)
     Route: 065
     Dates: start: 20190326
  6. FLONASE [Concomitant]
     Active Substance: FLUTICASONE PROPIONATE
     Dosage: 2 SPRAYS, PRN (50 MCG PER NASAL SPRAY)
     Dates: start: 20091024
  7. NEURONTIN [Concomitant]
     Active Substance: GABAPENTIN
     Indication: Lumbar spinal stenosis
     Dosage: 100 MG (1 CAPSULE), QD (NIGHTLY)
     Route: 048
     Dates: start: 20220531
  8. GLUCOSAMINE CHONDROITIN COMPLEX [ASCORBIC ACID;CHONDROITIN SULFATE SOD [Concomitant]
     Dosage: 1 TABLET, QD
     Route: 048
     Dates: start: 20170126, end: 20220906
  9. XALATAN [Concomitant]
     Active Substance: LATANOPROST
     Dosage: 1 DROP INTO BOTH EYES, QD
     Route: 047
  10. VITAMINS [Concomitant]
     Active Substance: VITAMINS
     Dosage: 1 TABLET, QD
     Route: 048
     Dates: start: 20091021
  11. HYALURONIC ACID SODIUM [Concomitant]
     Route: 048

REACTIONS (4)
  - Decreased interest [Recovered/Resolved]
  - Feeling abnormal [Unknown]
  - Fatigue [Not Recovered/Not Resolved]
  - Arthralgia [Not Recovered/Not Resolved]

NARRATIVE: CASE EVENT DATE: 20220901
